FAERS Safety Report 4723510-6 (Version None)
Quarter: 2005Q3

REPORT INFORMATION
  Report Type: 
  Country: None (occurrence: None)
  Receive Date: 20050725
  Receipt Date: 20050527
  Transmission Date: 20060218
  Serious: No
  Sender: FDA-Public Use
  Company Number: US-GLAXOSMITHKLINE-A0560389A

PATIENT
  Age: 88 Year
  Sex: Female

DRUGS (2)
  1. DYAZIDE [Suspect]
     Route: 048
     Dates: start: 20020101, end: 20050522
  2. ASPIRIN [Concomitant]

REACTIONS (3)
  - ERYTHEMA [None]
  - RASH [None]
  - RASH GENERALISED [None]
